FAERS Safety Report 24256043 (Version 1)
Quarter: 2024Q3

REPORT INFORMATION
  Report Type: Spontaneous
  Country: CN (occurrence: CN)
  Receive Date: 20240827
  Receipt Date: 20240827
  Transmission Date: 20241016
  Serious: Yes (Other)
  Sender: JOHNSON AND JOHNSON
  Company Number: CN-JNJFOC-20240854740

PATIENT
  Age: 21 Year
  Sex: Female
  Weight: 55.2 kg

DRUGS (3)
  1. REMICADE [Suspect]
     Active Substance: INFLIXIMAB
     Indication: Crohn^s disease
     Route: 041
     Dates: start: 20240704, end: 20240816
  2. DEXAMETHASONE [Concomitant]
     Active Substance: DEXAMETHASONE
     Route: 040
  3. SODIUM CHLORIDE [Concomitant]
     Active Substance: SODIUM CHLORIDE
     Dates: start: 20240704, end: 20240816

REACTIONS (9)
  - Heart rate increased [Recovered/Resolved]
  - Conjunctival hyperaemia [Recovered/Resolved]
  - Throat irritation [Recovered/Resolved]
  - Hypersensitivity [Recovered/Resolved]
  - Chest discomfort [Recovered/Resolved]
  - Dyspnoea [Recovered/Resolved]
  - Flushing [Recovered/Resolved]
  - Pruritus [Recovered/Resolved]
  - Infusion related reaction [Recovered/Resolved]

NARRATIVE: CASE EVENT DATE: 20240816
